FAERS Safety Report 8338715-5 (Version None)
Quarter: 2012Q2

REPORT INFORMATION
  Report Type: 
  Country: None (occurrence: None)
  Receive Date: 20120504
  Receipt Date: 20120420
  Transmission Date: 20120825
  Serious: Yes (Hospitalization)
  Sender: FDA-Public Use
  Company Number: TR-WATSON-2012-05753

PATIENT
  Age: 20 Year
  Sex: Male

DRUGS (1)
  1. CITALOPRAM HYDROBROMIDE [Suspect]
     Indication: SUICIDE ATTEMPT
     Dosage: 400 MG SINGLE
     Route: 065

REACTIONS (2)
  - OVERDOSE [None]
  - ARRHYTHMIA SUPRAVENTRICULAR [None]
